FAERS Safety Report 5994349-9 (Version None)
Quarter: 2008Q4

REPORT INFORMATION
  Report Type: 
  Country: None (occurrence: None)
  Receive Date: 20081212
  Receipt Date: 20080924
  Transmission Date: 20090506
  Serious: No
  Sender: FDA-Public Use
  Company Number: US-ABBOTT-08P-163-0474547-00

PATIENT
  Sex: Female
  Weight: 95 kg

DRUGS (5)
  1. HUMIRA [Suspect]
     Indication: PSORIATIC ARTHROPATHY
     Route: 058
     Dates: start: 20060901, end: 20080501
  2. HUMIRA [Suspect]
     Route: 058
     Dates: start: 20080801
  3. METOPROLOL [Concomitant]
     Indication: BLOOD PRESSURE
     Route: 048
     Dates: start: 20000101
  4. LISINOPRIL [Concomitant]
     Indication: BLOOD PRESSURE
     Route: 048
     Dates: start: 20000101
  5. VIT CALCIUM STRESS TAB WITH B6 [Concomitant]
     Indication: DRUG USE FOR UNKNOWN INDICATION
     Route: 048

REACTIONS (11)
  - ALOPECIA [None]
  - BACK PAIN [None]
  - DIVERTICULITIS [None]
  - DRY MOUTH [None]
  - EAR INFECTION [None]
  - FLANK PAIN [None]
  - HAEMORRHOIDS [None]
  - INFECTION [None]
  - PSORIASIS [None]
  - SKIN DISCOLOURATION [None]
  - WEIGHT INCREASED [None]
